FAERS Safety Report 13259881 (Version 2)
Quarter: 2017Q2

REPORT INFORMATION
  Report Type: Spontaneous
  Country: CA (occurrence: CA)
  Receive Date: 20170222
  Receipt Date: 20170510
  Transmission Date: 20170830
  Serious: Yes (Other)
  Sender: FDA-Public Use
  Company Number: CA-PFIZER INC-2016533008

PATIENT
  Age: 49 Year
  Sex: Male

DRUGS (6)
  1. ADVIL [Concomitant]
     Active Substance: IBUPROFEN
     Dosage: 1 TABLET, EACH NIGHTWITH HIS EVENING XELJANZ
  2. PREDNISONE. [Suspect]
     Active Substance: PREDNISONE
     Dosage: 15 MG, UNK
  3. PREDNISONE. [Suspect]
     Active Substance: PREDNISONE
     Dosage: 20 MG, UNK
  4. XELJANZ [Suspect]
     Active Substance: TOFACITINIB CITRATE
     Indication: RHEUMATOID ARTHRITIS
     Dosage: 5 MG, 2X/DAY
     Route: 048
     Dates: start: 20161103
  5. PREDNISONE. [Suspect]
     Active Substance: PREDNISONE
     Dosage: 10 MG, ONCE DAILY
  6. PREDNISONE. [Suspect]
     Active Substance: PREDNISONE
     Dosage: 5 MG, 2X/DAY
     Dates: start: 20161103

REACTIONS (4)
  - Muscle fatigue [Recovered/Resolved]
  - Diarrhoea [Recovered/Resolved]
  - Drug use disorder [Not Recovered/Not Resolved]
  - Myalgia [Not Recovered/Not Resolved]

NARRATIVE: CASE EVENT DATE: 20161103
